FAERS Safety Report 9729086 (Version 1)
Quarter: 2013Q4

REPORT INFORMATION
  Report Type: Spontaneous
  Country: US (occurrence: US)
  Receive Date: 20131204
  Receipt Date: 20131204
  Transmission Date: 20140711
  Serious: Yes (Other)
  Sender: FDA-Public Use
  Company Number: CHPA2013US017892

PATIENT
  Age: 14 Year
  Sex: Male

DRUGS (1)
  1. EX-LAX UNKNOWN [Suspect]
     Indication: INTENTIONAL DRUG MISUSE
     Dosage: 9 DF, ONCE/SINGLE
     Route: 048
     Dates: start: 20131127, end: 20131127

REACTIONS (2)
  - Intentional drug misuse [Unknown]
  - Overdose [Unknown]
